FAERS Safety Report 6924003-8 (Version None)
Quarter: 2010Q3

REPORT INFORMATION
  Report Type: 
  Country: None (occurrence: None)
  Receive Date: 20100813
  Receipt Date: 20100806
  Transmission Date: 20110219
  Serious: Yes (Hospitalization)
  Sender: FDA-Public Use
  Company Number: PHHO2010FR12070

PATIENT
  Sex: Male
  Weight: 36.5 kg

DRUGS (6)
  1. STI571/CGP57148B T35717+CAPS [Suspect]
     Indication: ACUTE LYMPHOCYTIC LEUKAEMIA
     Dosage: 400 MG/DAY
     Route: 048
     Dates: start: 20100715, end: 20100721
  2. METHOTREXATE [Interacting]
     Dosage: UNK
     Route: 042
     Dates: start: 20100715
  3. FOLINIC ACID [Concomitant]
  4. VINCRISTINE [Concomitant]
  5. ELSPAR [Concomitant]
  6. CYCLOPHOSPHAMIDE [Concomitant]

REACTIONS (2)
  - DRUG INTERACTION [None]
  - DRUG TOXICITY [None]
